FAERS Safety Report 7388205-1 (Version None)
Quarter: 2011Q1

REPORT INFORMATION
  Report Type: 
  Country: None (occurrence: None)
  Receive Date: 20110329
  Receipt Date: 20110329
  Transmission Date: 20110831
  Serious: Yes (Other)
  Sender: FDA-Public Use
  Company Number: None

PATIENT
  Sex: Male
  Weight: 86.1834 kg

DRUGS (1)
  1. CLARITHROMY  500 MG TAB [Suspect]
     Indication: INFECTION
     Dosage: 500 MG 1 TABLE TWICE A DAY
     Dates: start: 20110225

REACTIONS (8)
  - HALLUCINATION [None]
  - CONFUSIONAL STATE [None]
  - MEMORY IMPAIRMENT [None]
  - DEPRESSION [None]
  - SOMNAMBULISM [None]
  - MOOD ALTERED [None]
  - SLEEP TALKING [None]
  - NIGHTMARE [None]
